FAERS Safety Report 18562841 (Version 1)
Quarter: 2020Q4

REPORT INFORMATION
  Report Type: Spontaneous
  Country: US (occurrence: US)
  Receive Date: 20201130
  Receipt Date: 20201130
  Transmission Date: 20210114
  Serious: Yes (Other)
  Sender: FDA-Public Use
  Company Number: US-ROCHE-2657542

PATIENT
  Sex: Female

DRUGS (3)
  1. AFLIBERCEPT [Concomitant]
     Active Substance: AFLIBERCEPT
     Dates: start: 20160101
  2. LUCENTIS [Suspect]
     Active Substance: RANIBIZUMAB
     Indication: NEOVASCULAR AGE-RELATED MACULAR DEGENERATION
     Dosage: ONGOING NO
     Route: 050
     Dates: start: 20151031
  3. LUCENTIS [Suspect]
     Active Substance: RANIBIZUMAB
     Dosage: ONGOING YES
     Route: 050

REACTIONS (3)
  - Dyspepsia [Unknown]
  - Traumatic haemorrhage [Unknown]
  - Dementia [Unknown]
